FAERS Safety Report 4546652-7 (Version None)
Quarter: 2005Q1

REPORT INFORMATION
  Report Type: 
  Country: None (occurrence: None)
  Receive Date: 20050103
  Receipt Date: 20041209
  Transmission Date: 20050727
  Serious: Yes (Other)
  Sender: FDA-Public Use
  Company Number: JP_041205410

PATIENT
  Age: 79 Year
  Sex: Female

DRUGS (4)
  1. GEMZAR [Suspect]
     Indication: PANCREATIC CARCINOMA
     Dosage: 1000 MG OTHER
     Route: 050
     Dates: start: 20020718, end: 20021128
  2. DECADRON [Concomitant]
  3. NASEA (RAMOSETRON HYDROCHLORIDE) [Concomitant]
  4. LOXONIN (LOXOPROFEN SODIUM) [Concomitant]

REACTIONS (5)
  - GASTROINTESTINAL HAEMORRHAGE [None]
  - MALIGNANT NEOPLASM PROGRESSION [None]
  - METASTASES TO LUNG [None]
  - PANCREATIC CARCINOMA RECURRENT [None]
  - SHOCK HAEMORRHAGIC [None]
